FAERS Safety Report 13934019 (Version 1)
Quarter: 2017Q3

REPORT INFORMATION
  Report Type: Spontaneous
  Country: US (occurrence: US)
  Receive Date: 20170904
  Receipt Date: 20170904
  Transmission Date: 20171127
  Serious: No
  Sender: FDA-Public Use
  Company Number: US-BIOGEN-2017BI00451384

PATIENT
  Sex: Female

DRUGS (1)
  1. TYSABRI [Suspect]
     Active Substance: NATALIZUMAB
     Indication: MULTIPLE SCLEROSIS
     Route: 065
     Dates: start: 20160407

REACTIONS (5)
  - Multiple sclerosis [Not Recovered/Not Resolved]
  - Dysarthria [Not Recovered/Not Resolved]
  - Drug dose omission [Recovered/Resolved]
  - Lethargy [Not Recovered/Not Resolved]
  - Mobility decreased [Not Recovered/Not Resolved]
